FAERS Safety Report 6386644-9 (Version None)
Quarter: 2009Q4

REPORT INFORMATION
  Report Type: 
  Country: None (occurrence: None)
  Receive Date: 20091002
  Receipt Date: 20090921
  Transmission Date: 20100525
  Serious: Yes (Other)
  Sender: FDA-Public Use
  Company Number: US-PFIZER INC-2009276412

PATIENT
  Sex: Female

DRUGS (9)
  1. GEODON [Suspect]
     Dosage: 20 MG, 2X/DAY
  2. WARFARIN [Concomitant]
     Dosage: UNK
  3. NITROGLYCERIN [Concomitant]
     Dosage: UNK
  4. METOPROLOL [Concomitant]
     Dosage: UNK
  5. ZOLPIDEM [Concomitant]
     Dosage: UNK
  6. TRAZODONE [Concomitant]
     Dosage: UNK
  7. AMLODIPINE [Concomitant]
     Dosage: UNK
  8. ARICEPT [Concomitant]
     Dosage: UNK
  9. CITALOPRAM [Concomitant]
     Dosage: UNK

REACTIONS (2)
  - GASTROSTOMY TUBE INSERTION [None]
  - WRONG TECHNIQUE IN DRUG USAGE PROCESS [None]
